FAERS Safety Report 11465702 (Version 6)
Quarter: 2015Q4

REPORT INFORMATION
  Report Type: Spontaneous
  Country: US (occurrence: US)
  Receive Date: 20150907
  Receipt Date: 20151123
  Transmission Date: 20160304
  Serious: Yes (Life-Threatening, Hospitalization, Other)
  Sender: FDA-Public Use
  Company Number: US-UCBSA-2015026614

PATIENT
  Age: 31 Year
  Sex: Male
  Weight: 75 kg

DRUGS (6)
  1. KEPPRA XR [Suspect]
     Active Substance: LEVETIRACETAM
     Indication: SEIZURE
     Dosage: 1500 MG, 2X/DAY (500 MG 3 TABLETS EVERY 12 HOURS)
     Route: 048
  2. CELECOXIB. [Concomitant]
     Active Substance: CELECOXIB
     Indication: SEIZURE
     Dosage: 200 MG, 2X/DAY (BID)
     Route: 048
  3. DIVALPROEX [Concomitant]
     Active Substance: DIVALPROEX SODIUM
     Indication: SEIZURE
     Dosage: 1500 MG, 2X/DAY (500 MG 3 TABLETS EVERY 12 HOURS)
     Route: 048
     Dates: start: 201509
  4. TIZANIDINE HYDROCHLORIDE. [Concomitant]
     Active Substance: TIZANIDINE HYDROCHLORIDE
     Indication: BACK PAIN
     Dosage: 4 MG, 3X/DAY (TID)
     Route: 048
  5. GABAPENTIN. [Concomitant]
     Active Substance: GABAPENTIN
     Indication: TACHYPHRENIA
     Dosage: 300 MG, 3X/DAY (TID)
     Route: 048
  6. VIMPAT [Suspect]
     Active Substance: LACOSAMIDE
     Indication: SEIZURE
     Dosage: 200 MG, 2X/DAY (BID)
     Route: 048
     Dates: start: 201509

REACTIONS (17)
  - Craniocerebral injury [Not Recovered/Not Resolved]
  - Central nervous system infection [Recovered/Resolved]
  - Weight decreased [Not Recovered/Not Resolved]
  - Enzyme abnormality [Unknown]
  - Laceration [Recovered/Resolved]
  - Reading disorder [Not Recovered/Not Resolved]
  - Disorientation [Not Recovered/Not Resolved]
  - Fall [Unknown]
  - Dysgraphia [Not Recovered/Not Resolved]
  - Concussion [Unknown]
  - Dysphagia [Not Recovered/Not Resolved]
  - Drug dose omission [Unknown]
  - Seizure [Not Recovered/Not Resolved]
  - Aspiration [Unknown]
  - Apnoea [Not Recovered/Not Resolved]
  - Insomnia [Not Recovered/Not Resolved]
  - Off label use [Unknown]

NARRATIVE: CASE EVENT DATE: 2015
